FAERS Safety Report 22763016 (Version 3)
Quarter: 2023Q4

REPORT INFORMATION
  Report Type: Spontaneous
  Country: FR (occurrence: FR)
  Receive Date: 20230729
  Receipt Date: 20231026
  Transmission Date: 20240109
  Serious: Yes (Hospitalization, Other)
  Sender: FDA-Public Use
  Company Number: FR-BAXTER-2023BAX026025

PATIENT
  Age: 56 Year
  Sex: Female

DRUGS (21)
  1. DOXORUBICIN [Suspect]
     Active Substance: DOXORUBICIN
     Indication: Diffuse large B-cell lymphoma
     Dosage: UNK (50 MG/M2,N Q3W, AS APART OF R-CHOP REGIMEN)
     Route: 042
     Dates: start: 20230530
  2. PREDNISONE [Suspect]
     Active Substance: PREDNISONE
     Indication: Diffuse large B-cell lymphoma
     Dosage: 100 MILLIGRAM, ONCE A DAY (AS APART OF R-CHOP REGIMEN)
     Route: 048
     Dates: start: 20230530
  3. PREDNISONE [Suspect]
     Active Substance: PREDNISONE
     Dosage: 100 MILLIGRAM, ONCE A DAY (Q3W, DAY 1-5, AS APART OF R-CHOP REGIMEN)
     Route: 048
     Dates: start: 20230606
  4. PREDNISONE [Suspect]
     Active Substance: PREDNISONE
     Dosage: 40 MILLIGRAM ADMINISTRATION ERROR, QD, AS APART OF R-CHOP REGIMEN
     Route: 048
     Dates: start: 20230602
  5. CYCLOPHOSPHAMIDE [Suspect]
     Active Substance: CYCLOPHOSPHAMIDE
     Indication: Diffuse large B-cell lymphoma
     Dosage: 750 MILLIGRAM/SQ. METER (, Q3W, AS APART OF R-CHOP REGIMEN)
     Route: 042
     Dates: start: 20230530
  6. EPCORITAMAB [Suspect]
     Active Substance: EPCORITAMAB
     Indication: Diffuse large B-cell lymphoma
     Dosage: 0.16 MILLIGRAM  PRIMING DOSE, C1, D1, TOTAL
     Route: 058
     Dates: start: 20230531, end: 20230531
  7. EPCORITAMAB [Suspect]
     Active Substance: EPCORITAMAB
     Dosage: 48 MILLIGRAM Q1W, FULL DOSE
     Route: 058
     Dates: start: 20230613
  8. EPCORITAMAB [Suspect]
     Active Substance: EPCORITAMAB
     Dosage: 0.8 MILLIGRAM TOTAL, INTERMEDIATE DOSE, C1, D8
     Route: 058
     Dates: start: 20230606
  9. RITUXIMAB [Suspect]
     Active Substance: RITUXIMAB
     Indication: Diffuse large B-cell lymphoma
     Dosage: 375 MILLIGRAM/SQ. METER Q3W, AS APART OF R-CHOP REGIMEN
     Route: 042
     Dates: start: 20230530
  10. VINCRISTINE [Suspect]
     Active Substance: VINCRISTINE
     Indication: Diffuse large B-cell lymphoma
     Dosage: 1.4 MILLIGRAM/SQ. METER  Q3W, AS APART OF R-CHOP REGIMEN
     Route: 042
     Dates: start: 20230530
  11. ACETAMINOPHEN [Concomitant]
     Active Substance: ACETAMINOPHEN
     Indication: Cytokine release syndrome
     Dosage: 1000 MILLIGRAM, AS NECESSARY
     Route: 065
     Dates: start: 20230606
  12. ACETAMINOPHEN [Concomitant]
     Active Substance: ACETAMINOPHEN
     Indication: Immune effector cell-associated neurotoxicity syndrome
  13. AMOXICILLIN [Concomitant]
     Active Substance: AMOXICILLIN
     Indication: Prophylaxis
     Dosage: 1 DOSAGE FORM, ONCE A DAY
     Route: 065
     Dates: start: 20230530
  14. ATOVAQUONE [Concomitant]
     Active Substance: ATOVAQUONE
     Indication: Infection prophylaxis
     Dosage: 5 MILLILITER, ONCE A DAY
     Route: 065
     Dates: start: 20230530
  15. PANTOPRAZOLE [Concomitant]
     Active Substance: PANTOPRAZOLE
     Indication: Gastrooesophageal reflux prophylaxis
     Dosage: 40 MILLIGRAM, TWO TIMES A DAY
     Route: 065
     Dates: start: 20230522
  16. POLARAMINE [Concomitant]
     Active Substance: DEXCHLORPHENIRAMINE MALEATE
     Indication: Cytokine release syndrome
     Dosage: UNK UNK, AS NECESSARY
     Route: 065
     Dates: start: 20230530
  17. POLARAMINE [Concomitant]
     Active Substance: DEXCHLORPHENIRAMINE MALEATE
     Indication: Immune effector cell-associated neurotoxicity syndrome
  18. SODIUM BICARBONATE [Concomitant]
     Active Substance: SODIUM BICARBONATE
     Indication: Prophylaxis
     Dosage: UNK 6 U, 6 PER DAY
     Route: 065
     Dates: start: 20230530
  19. VALACYCLOVIR HYDROCHLORIDE [Concomitant]
     Active Substance: VALACYCLOVIR HYDROCHLORIDE
     Indication: Infection prophylaxis
     Dosage: 500 MILLIGRAM, TWO TIMES A DAY
     Route: 065
     Dates: start: 20230530
  20. FILGRASTIM [Concomitant]
     Active Substance: FILGRASTIM
     Indication: Prophylaxis
     Dosage: 30000 INTERNATIONAL UNIT, ONCE A DAY
     Route: 065
     Dates: start: 20230604
  21. FILGRASTIM [Concomitant]
     Active Substance: FILGRASTIM
     Dosage: 30000 INTERNATIONAL UNIT, ONCE A DAY
     Route: 065
     Dates: start: 20230625

REACTIONS (2)
  - Febrile bone marrow aplasia [Recovered/Resolved]
  - Febrile neutropenia [Recovered/Resolved]

NARRATIVE: CASE EVENT DATE: 20230628
